FAERS Safety Report 14802813 (Version 2)
Quarter: 2018Q2

REPORT INFORMATION
  Report Type: Report from Study
  Country: FR (occurrence: FR)
  Receive Date: 20180424
  Receipt Date: 20180605
  Transmission Date: 20180711
  Serious: Yes (Death, Other)
  Sender: FDA-Public Use
  Company Number: FR-PFIZER INC-2018165047

PATIENT
  Age: 62 Year
  Sex: Female
  Weight: 51 kg

DRUGS (45)
  1. LEVOTHYROX [Concomitant]
     Active Substance: LEVOTHYROXINE
     Dosage: 100 UG, 1X/DAY IN THE MORNING
     Route: 048
     Dates: start: 20180330, end: 20180410
  2. LEVOTHYROX [Concomitant]
     Active Substance: LEVOTHYROXINE
     Dosage: 125 UG, 1X/DAY IN THE MORNING
     Route: 048
     Dates: start: 20180411, end: 20180417
  3. GLUCOSE [Concomitant]
     Active Substance: DEXTROSE
     Dosage: 1000 ML, DAILY OVER 24 HOURS
     Route: 042
     Dates: start: 20180411, end: 20180411
  4. LASILIX /00032601/ [Concomitant]
     Active Substance: FUROSEMIDE
     Dosage: 60 MG, SINGLE
     Route: 042
     Dates: start: 20180418, end: 20180418
  5. MOVICOL [Concomitant]
     Active Substance: POLYETHYLENE GLYCOL 3350\POTASSIUM CHLORIDE\SODIUM BICARBONATE\SODIUM CHLORIDE
     Dosage: 1 DF, 1X/DAY IN THE MORNING
     Route: 048
     Dates: start: 20180330
  6. SPECIAFOLDINE [Concomitant]
     Active Substance: FOLIC ACID
     Dosage: 0.4 MG, 1X/DAY IN THE MORNING
     Route: 048
     Dates: start: 20180409, end: 20180415
  7. SODIUM CHLORIDE. [Concomitant]
     Active Substance: SODIUM CHLORIDE
     Dosage: 4 G, DAILY CONTINUOUS
     Route: 042
     Dates: start: 20180411, end: 20180411
  8. SODIUM CHLORIDE. [Concomitant]
     Active Substance: SODIUM CHLORIDE
     Dosage: 1000 ML, DAILY CONTINUOUS
     Route: 042
     Dates: start: 20180412, end: 20180416
  9. PERFALGAN [Concomitant]
     Active Substance: ACETAMINOPHEN
     Indication: PAIN
     Dosage: 1000 MG, AS NEEDED
     Route: 042
     Dates: start: 20180407
  10. TAZOCILLINE [Concomitant]
     Active Substance: PIPERACILLIN SODIUM\TAZOBACTAM SODIUM
     Dosage: 4 G, UNK
     Route: 042
     Dates: start: 20180416, end: 20180418
  11. KAYEXALATE [Concomitant]
     Active Substance: SODIUM POLYSTYRENE SULFONATE
     Dosage: 20 G, UNK
     Route: 048
     Dates: start: 20180411, end: 20180411
  12. CALCIUM GLUCONATE. [Concomitant]
     Active Substance: CALCIUM GLUCONATE
     Dosage: 1 G, UNK
     Dates: start: 20180411, end: 20180411
  13. PARACETAMOL [Concomitant]
     Active Substance: ACETAMINOPHEN
     Indication: PYREXIA
  14. MIDAZOLAM [Concomitant]
     Active Substance: MIDAZOLAM HYDROCHLORIDE
     Indication: AGITATION
     Dosage: 1 MG, AS NEEDED
     Route: 042
     Dates: start: 20180417
  15. SOLU-MEDROL [Concomitant]
     Active Substance: METHYLPREDNISOLONE SODIUM SUCCINATE
     Dosage: 80 MG, UNK
     Route: 042
     Dates: start: 20180408
  16. AMIKLIN /00391001/ [Concomitant]
     Active Substance: AMIKACIN SULFATE
     Dosage: 750 MG, UNK
     Route: 042
     Dates: start: 20180416, end: 20180418
  17. XALKORI [Suspect]
     Active Substance: CRIZOTINIB
     Indication: NON-SMALL CELL LUNG CANCER
     Dosage: 250 MG, 2X/DAY
     Dates: start: 20180410, end: 20180417
  18. XANAX [Concomitant]
     Active Substance: ALPRAZOLAM
     Dosage: 0.25 MG, 3X/DAY IN THE MORNING, AT NOON AND IN THE EVENING
     Route: 048
     Dates: start: 20180412, end: 20180417
  19. GLUCOSE 5% BRAUN [Concomitant]
     Active Substance: DEXTROSE
     Dosage: 250 ML, UNK
     Route: 042
     Dates: start: 20180416
  20. SCOBUREN [Concomitant]
     Active Substance: BUTYLSCOPOLAMINE
     Indication: BRONCHIAL OBSTRUCTION
     Dosage: 20 MG, AS NEEDED
     Route: 042
     Dates: start: 20180417
  21. SPASFON /00934601/ [Concomitant]
     Active Substance: PHLOROGLUCINOL
     Indication: ABDOMINAL PAIN
     Dosage: 120 MG, CONTINUOUS
     Route: 042
     Dates: start: 20180409, end: 20180411
  22. GELASPAN [Concomitant]
     Active Substance: CALCIUM CHLORIDE\MAGNESIUM CHLORIDE\POTASSIUM CHLORIDE\SODIUM ACETATE \SODIUM CHLORIDE\SUCCINYLATED GELATIN
     Dosage: 500 ML, SINGLE
     Route: 042
     Dates: start: 20180410, end: 20180410
  23. IMODIUM [Concomitant]
     Active Substance: LOPERAMIDE HYDROCHLORIDE
     Indication: DIARRHOEA
     Dosage: 2 MG, AS NEEDED
     Route: 048
     Dates: start: 20180412, end: 20180417
  24. VIALEBEX [Concomitant]
     Active Substance: ALBUMIN HUMAN
     Dosage: 40 G, DAILY
     Route: 042
     Dates: start: 20180416, end: 20180418
  25. XANAX [Concomitant]
     Active Substance: ALPRAZOLAM
     Indication: ANXIETY
     Dosage: 0.25 MG, AS NEEDED
     Route: 048
     Dates: start: 20180410, end: 20180412
  26. RESIKALI [Concomitant]
     Active Substance: CALCIUM POLYSTYRENE SULFONATE
     Dosage: 20 G, UNK
     Route: 048
     Dates: start: 20180411, end: 20180411
  27. GLUCOSE 5% BRAUN [Concomitant]
     Active Substance: DEXTROSE
     Dosage: 100 ML, UNK
     Route: 042
     Dates: start: 20180408, end: 20180408
  28. GLUCOSE 5% BRAUN [Concomitant]
     Active Substance: DEXTROSE
     Dosage: 100 ML, UNK
     Route: 042
     Dates: start: 20180416, end: 20180418
  29. LYSANXIA [Concomitant]
     Active Substance: PRAZEPAM
     Dosage: 10 MG, UNK
     Route: 048
     Dates: start: 20180408, end: 20180412
  30. PARACETAMOL [Concomitant]
     Active Substance: ACETAMINOPHEN
     Indication: PAIN
     Dosage: 1000 MG, AS NEEDED
     Route: 048
     Dates: start: 20180329, end: 20180411
  31. MORPHINE [Concomitant]
     Active Substance: MORPHINE
     Indication: TACHYPNOEA
     Dosage: 2 MG, AS NEEDED
     Route: 042
     Dates: start: 20180417
  32. GLUCOSE [Concomitant]
     Active Substance: DEXTROSE
     Dosage: 500 ML, DAILY
     Route: 042
     Dates: start: 20180411, end: 20180413
  33. PRIMPERAN [Concomitant]
     Active Substance: METOCLOPRAMIDE HYDROCHLORIDE
     Dosage: 10 MG, 3X/DAY
     Route: 042
     Dates: start: 20180407
  34. HUMALOG [Concomitant]
     Active Substance: INSULIN LISPRO
     Dosage: 10 IU, 1X/DAY IN THE MORNING
     Route: 058
     Dates: start: 20180412, end: 20180412
  35. KAYEXALATE [Concomitant]
     Active Substance: SODIUM POLYSTYRENE SULFONATE
     Dosage: 20 G, 1X/DAY AT NOON
     Route: 048
     Dates: start: 20180412, end: 20180412
  36. RESIKALI [Concomitant]
     Active Substance: CALCIUM POLYSTYRENE SULFONATE
     Dosage: 20 G, 1X/DAY AT NOON
     Route: 048
     Dates: start: 20180412, end: 20180412
  37. GLUCOSE 5% BRAUN [Concomitant]
     Active Substance: DEXTROSE
     Dosage: 500 ML, UNK
     Route: 042
     Dates: start: 20180410, end: 20180410
  38. GLUCOSE 5% BRAUN [Concomitant]
     Active Substance: DEXTROSE
     Dosage: 250 ML, UNK
     Route: 042
     Dates: start: 20180411, end: 20180411
  39. OROZAMUDOL [Concomitant]
     Active Substance: TRAMADOL
     Dosage: 50 MG, AS NEEDED
     Route: 048
     Dates: start: 20180329
  40. SODIUM CHLORIDE. [Concomitant]
     Active Substance: SODIUM CHLORIDE
     Dosage: 500 ML, UNK
     Route: 042
     Dates: start: 20180409, end: 20180411
  41. SPASFON /00934601/ [Concomitant]
     Active Substance: PHLOROGLUCINOL
     Dosage: 80 MG, AS NEEDED
     Route: 042
     Dates: start: 20180411
  42. SODIUM BICARBONATE. [Concomitant]
     Active Substance: SODIUM BICARBONATE
     Dosage: 500 ML, SINGLE
     Route: 042
     Dates: start: 20180411, end: 20180411
  43. LOVENOX [Concomitant]
     Active Substance: ENOXAPARIN SODIUM
     Indication: PROPHYLAXIS
     Dosage: 4000 IU, EVERY 16 HOURS
     Route: 058
     Dates: start: 20180329, end: 20180418
  44. AREDIA [Concomitant]
     Active Substance: PAMIDRONATE DISODIUM
     Indication: HYPERCALCAEMIA
     Dosage: UNK
     Route: 042
     Dates: start: 20180410, end: 20180410
  45. DEROXAT [Concomitant]
     Active Substance: PAROXETINE HYDROCHLORIDE
     Dosage: 20 MG, 1X/DAY IN THE MORNING
     Route: 048
     Dates: start: 20180330, end: 20180417

REACTIONS (2)
  - Lung disorder [Not Recovered/Not Resolved]
  - Neoplasm progression [Fatal]

NARRATIVE: CASE EVENT DATE: 20180416
